FAERS Safety Report 16495441 (Version 1)
Quarter: 2019Q2

REPORT INFORMATION
  Report Type: Other
  Country: CN (occurrence: CN)
  Receive Date: 20190628
  Receipt Date: 20190628
  Transmission Date: 20190711
  Serious: Yes (Other)
  Sender: FDA-Public Use
  Company Number: CN-GE HEALTHCARE LIFE SCIENCES-2019CSU003419

PATIENT

DRUGS (2)
  1. OMNIPAQUE [Suspect]
     Active Substance: IOHEXOL
     Indication: VERTEBROBASILAR INSUFFICIENCY
     Dosage: 100 ML, SINGLE
     Route: 042
     Dates: start: 20190425, end: 20190425
  2. OMNIPAQUE [Suspect]
     Active Substance: IOHEXOL
     Indication: ANGIOCARDIOGRAM

REACTIONS (2)
  - Larynx irritation [Unknown]
  - Lacrimation disorder [Unknown]

NARRATIVE: CASE EVENT DATE: 20190425
